FAERS Safety Report 24068735 (Version 1)
Quarter: 2024Q3

REPORT INFORMATION
  Report Type: Report from Study
  Country: US (occurrence: US)
  Receive Date: 20240710
  Receipt Date: 20240710
  Transmission Date: 20241016
  Serious: No
  Sender: ROCHE
  Company Number: US-ROCHE-3542955

PATIENT
  Age: 62 Year
  Sex: Female
  Weight: 100.24 kg

DRUGS (4)
  1. VABYSMO [Suspect]
     Active Substance: FARICIMAB\FARICIMAB-SVOA
     Indication: Diabetic retinopathy
     Route: 031
     Dates: start: 202303, end: 202403
  2. VABYSMO [Suspect]
     Active Substance: FARICIMAB\FARICIMAB-SVOA
     Indication: Macular oedema
     Dosage: RIGHT EYE
     Route: 031
     Dates: start: 202402
  3. ROCATAN [Concomitant]
     Dosage: EYE DROP 1 GTT ONCE A DAY
     Route: 031
     Dates: start: 202302
  4. ALPHAGAN P [Concomitant]
     Active Substance: BRIMONIDINE TARTRATE

REACTIONS (5)
  - Malaise [Recovering/Resolving]
  - Chills [Recovering/Resolving]
  - Feeling of body temperature change [Recovering/Resolving]
  - Cough [Recovering/Resolving]
  - Off label use [Unknown]

NARRATIVE: CASE EVENT DATE: 20240407
